FAERS Safety Report 10090460 (Version 1)
Quarter: 2014Q2

REPORT INFORMATION
  Report Type: Spontaneous
  Country: US (occurrence: US)
  Receive Date: 20140421
  Receipt Date: 20140421
  Transmission Date: 20141212
  Serious: Yes (Life-Threatening, Other)
  Sender: FDA-Public Use
  Company Number: US-ACTAVIS-2014-07574

PATIENT
  Age: 51 Year
  Sex: Female

DRUGS (6)
  1. OXALIPLATIN (ATLLC) [Suspect]
     Indication: SMALL INTESTINE ADENOCARCINOMA
     Dosage: UNK
     Route: 042
  2. IRINOTECAN HYDROCHLORIDE (ATLLC) [Suspect]
     Indication: SMALL INTESTINE ADENOCARCINOMA
     Dosage: UNK
     Route: 042
  3. CALCIUM FOLINATE (UNKNOWN) [Suspect]
     Indication: SMALL INTESTINE ADENOCARCINOMA
     Dosage: UNK
     Route: 042
  4. CALCIUM FOLINATE (UNKNOWN) [Suspect]
     Dosage: 1/WEEK
     Route: 065
  5. FLUOROURACIL [Suspect]
     Indication: SMALL INTESTINE ADENOCARCINOMA
     Dosage: WEEKLY
     Route: 065
  6. FLUOROURACIL [Suspect]
     Dosage: UNK
     Route: 042

REACTIONS (10)
  - Hyperammonaemic encephalopathy [Recovered/Resolved]
  - Cardiac failure congestive [Recovered/Resolved]
  - Respiratory failure [Recovered/Resolved]
  - Renal failure acute [Recovered/Resolved]
  - Renal tubular necrosis [Recovered/Resolved]
  - Cardiac ventricular thrombosis [Recovered/Resolved]
  - Pancytopenia [Recovered/Resolved]
  - Febrile neutropenia [Recovered/Resolved]
  - Nausea [Recovered/Resolved]
  - Vomiting [Recovered/Resolved]
